FAERS Safety Report 5029128-2 (Version None)
Quarter: 2006Q2

REPORT INFORMATION
  Report Type: 
  Country: None (occurrence: None)
  Receive Date: 20060613
  Receipt Date: 20060529
  Transmission Date: 20061013
  Serious: Yes (Hospitalization)
  Sender: FDA-Public Use
  Company Number: 2006BL002644

PATIENT
  Age: 82 Year
  Sex: Male

DRUGS (2)
  1. CARTEOLOL HYDROCHLORIDE [Suspect]
     Dosage: OPHTHALMIC
     Route: 047
     Dates: start: 20060201, end: 20060410
  2. LASILIX [Concomitant]

REACTIONS (15)
  - BLOOD CREATININE INCREASED [None]
  - BLOOD CULTURE POSITIVE [None]
  - BRADYCARDIA [None]
  - CONDITION AGGRAVATED [None]
  - CONDUCTION DISORDER [None]
  - DIARRHOEA [None]
  - DISORIENTATION [None]
  - ELECTROCARDIOGRAM QRS COMPLEX PROLONGED [None]
  - ESCHERICHIA INFECTION [None]
  - HYPERKALAEMIA [None]
  - HYPONATRAEMIA [None]
  - HYPOTHERMIA [None]
  - METABOLIC ACIDOSIS [None]
  - SINOATRIAL BLOCK [None]
  - SYNCOPE [None]
